FAERS Safety Report 7323673-2 (Version None)
Quarter: 2011Q1

REPORT INFORMATION
  Report Type: 
  Country: None (occurrence: None)
  Receive Date: 20110301
  Receipt Date: 20110217
  Transmission Date: 20110831
  Serious: Yes (Other)
  Sender: FDA-Public Use
  Company Number: PHHY2011US12861

PATIENT
  Sex: Male

DRUGS (5)
  1. WARFARIN [Concomitant]
     Dosage: UNK
  2. FELODIPINE [Concomitant]
  3. LISINOPRIL [Concomitant]
     Dosage: UNK
  4. ALLOPURINOL [Concomitant]
  5. TASIGNA [Suspect]
     Dosage: 300 MG, BID

REACTIONS (3)
  - THROMBOSIS [None]
  - FEELING ABNORMAL [None]
  - GOUT [None]
